FAERS Safety Report 8021526-8 (Version None)
Quarter: 2012Q1

REPORT INFORMATION
  Report Type: 
  Country: None (occurrence: None)
  Receive Date: 20120104
  Receipt Date: 20111229
  Transmission Date: 20120608
  Serious: No
  Sender: FDA-Public Use
  Company Number: US-B.I. PHARMACEUTICALS,INC./RIDGEFIELD-2012-BP-00039BP

PATIENT
  Sex: Male

DRUGS (12)
  1. METFORMIN HCL [Concomitant]
     Dosage: 1000 MG
     Route: 048
  2. LORTAB [Concomitant]
     Route: 048
  3. REQUIP [Concomitant]
     Dosage: 1.5 MG
     Route: 048
  4. METOPROLOL TARTRATE [Concomitant]
     Indication: HYPERTENSION
     Dosage: 75 MG
     Route: 048
  5. ASPIRIN [Concomitant]
     Indication: ROUTINE HEALTH MAINTENANCE
     Dosage: 81 MG
     Route: 048
  6. RANEXA [Concomitant]
     Indication: CARDIAC DISORDER
     Dosage: 500 MG
     Route: 048
  7. ATORVASTATIN [Concomitant]
     Indication: BLOOD CHOLESTEROL INCREASED
     Dosage: 40 MG
     Route: 048
  8. POTASSIUM CHLORIDE [Concomitant]
     Dosage: 10 MEQ
     Route: 048
  9. MICARDIS HCT [Concomitant]
     Indication: HYPERTENSION
     Route: 048
  10. BENADRYL [Concomitant]
     Dosage: 25 MG
     Route: 048
  11. PRADAXA [Suspect]
     Indication: ATRIAL FIBRILLATION
     Dosage: 300 MG
     Route: 048
     Dates: start: 20110101
  12. FUROSEMIDE [Concomitant]
     Dosage: 40 MG
     Route: 048

REACTIONS (2)
  - GASTRITIS [None]
  - HERNIA [None]
